FAERS Safety Report 9604222 (Version 1)
Quarter: 2013Q2

REPORT INFORMATION
  Report Type: Spontaneous
  Country: US (occurrence: None)
  Receive Date: 20130517
  Receipt Date: 20130517
  Transmission Date: 20140414
  Serious: Yes (Hospitalization)
  Sender: FDA-Public Use
  Company Number: 148063

PATIENT
  Age: 18 Year
  Sex: Female

DRUGS (1)
  1. KETAMINE [Suspect]
     Indication: DRUG ABUSE

REACTIONS (16)
  - Biliary dilatation [None]
  - Sphincter of Oddi dysfunction [None]
  - Abdominal pain [None]
  - Vomiting [None]
  - Food intolerance [None]
  - White blood cell count increased [None]
  - Aspartate aminotransferase increased [None]
  - Alanine aminotransferase increased [None]
  - Gamma-glutamyltransferase increased [None]
  - Gallbladder disorder [None]
  - Choledochal cyst [None]
  - Gastric mucosa erythema [None]
  - Dysuria [None]
  - Micturition urgency [None]
  - Pollakiuria [None]
  - Ascites [None]
